FAERS Safety Report 15282188 (Version 3)
Quarter: 2018Q3

REPORT INFORMATION
  Report Type: Spontaneous
  Country: US (occurrence: US)
  Receive Date: 20180815
  Receipt Date: 20180917
  Transmission Date: 20181010
  Serious: No
  Sender: FDA-Public Use
  Company Number: US-ASTRAZENECA-2018SF02800

PATIENT
  Age: 75 Year
  Sex: Male
  Weight: 88.5 kg

DRUGS (13)
  1. BYETTA [Suspect]
     Active Substance: EXENATIDE
     Indication: TYPE 2 DIABETES MELLITUS
     Dosage: UNKNOWN DOSE, TWICE A DAY
     Route: 065
  2. AMLODIPINE [Concomitant]
     Active Substance: AMLODIPINE BESYLATE
  3. METFORMIN [Concomitant]
     Active Substance: METFORMIN HYDROCHLORIDE
  4. BYDUREON [Suspect]
     Active Substance: EXENATIDE
     Indication: TYPE 2 DIABETES MELLITUS
     Dosage: ONCE WEEKLY, UNKNOWN DOSE
     Route: 065
  5. OMEPRAZOLE. [Suspect]
     Active Substance: OMEPRAZOLE
     Route: 048
  6. GABAPENTIN. [Concomitant]
     Active Substance: GABAPENTIN
     Indication: NEUROPATHY PERIPHERAL
     Dosage: 1200
  7. METHOCARBAMOL. [Concomitant]
     Active Substance: METHOCARBAMOL
     Indication: MUSCLE RELAXANT THERAPY
  8. SYNTHROID [Concomitant]
     Active Substance: LEVOTHYROXINE SODIUM
  9. AMIODARONE [Concomitant]
     Active Substance: AMIODARONE
  10. HYDROCHLOROTHIAZIDE. [Concomitant]
     Active Substance: HYDROCHLOROTHIAZIDE
     Indication: DIURETIC THERAPY
  11. ZOCOR [Concomitant]
     Active Substance: SIMVASTATIN
  12. FARXIGA [Suspect]
     Active Substance: DAPAGLIFLOZIN PROPANEDIOL
     Indication: TYPE 2 DIABETES MELLITUS
     Route: 048
  13. BYDUREON BCISE [Suspect]
     Active Substance: EXENATIDE
     Indication: TYPE 2 DIABETES MELLITUS
     Route: 058

REACTIONS (13)
  - Dry skin [Unknown]
  - Underdose [Unknown]
  - Glycosylated haemoglobin increased [Unknown]
  - Intentional product misuse [Unknown]
  - Gait disturbance [Unknown]
  - Back pain [Unknown]
  - Infection [Recovered/Resolved]
  - Ill-defined disorder [Unknown]
  - Weight decreased [Unknown]
  - Infection [Unknown]
  - Compression fracture [Unknown]
  - Device leakage [Unknown]
  - Asthenia [Unknown]

NARRATIVE: CASE EVENT DATE: 2006
